FAERS Safety Report 13942663 (Version 1)
Quarter: 2017Q3

REPORT INFORMATION
  Report Type: Report from Study
  Country: US (occurrence: US)
  Receive Date: 20170906
  Receipt Date: 20170906
  Transmission Date: 20171127
  Serious: Yes (Hospitalization)
  Sender: FDA-Public Use
  Company Number: US-VIFOR (INTERNATIONAL) INC.-VIT-2017-09086

PATIENT
  Age: 56 Year
  Sex: Female

DRUGS (18)
  1. DAPSONE. [Concomitant]
     Active Substance: DAPSONE
  2. MYFORTIC [Concomitant]
     Active Substance: MYCOPHENOLATE SODIUM
  3. CARVEDILOL. [Concomitant]
     Active Substance: CARVEDILOL
  4. CALCITRIOL. [Concomitant]
     Active Substance: CALCITRIOL
  5. PROGRAF [Concomitant]
     Active Substance: TACROLIMUS\TACROLIMUS ANHYDROUS
  6. SODIUM BICARBONATE. [Concomitant]
     Active Substance: SODIUM BICARBONATE
  7. TRADJENTA [Concomitant]
     Active Substance: LINAGLIPTIN
  8. MULTIVITAMIN [Concomitant]
     Active Substance: VITAMINS
  9. HUMALOG [Concomitant]
     Active Substance: INSULIN LISPRO
  10. CALCIUM LACTATE [Concomitant]
     Active Substance: CALCIUM LACTATE
  11. VELTASSA [Suspect]
     Active Substance: PATIROMER
     Indication: HYPERKALAEMIA
     Route: 048
     Dates: start: 20170321
  12. VALGANCICLOVIR. [Concomitant]
     Active Substance: VALGANCICLOVIR
  13. ATORVASTATIN [Concomitant]
     Active Substance: ATORVASTATIN
  14. NIFEDIPINE. [Concomitant]
     Active Substance: NIFEDIPINE
  15. LEVEMIR [Concomitant]
     Active Substance: INSULIN DETEMIR
  16. LEVOTHYROXINE. [Concomitant]
     Active Substance: LEVOTHYROXINE
  17. ACETYLSALICYLIC ACID [Concomitant]
     Active Substance: ASPIRIN
  18. AMITRIPTYLINE [Concomitant]
     Active Substance: AMITRIPTYLINE

REACTIONS (2)
  - Drug dose omission [Unknown]
  - Blood potassium increased [Recovered/Resolved]

NARRATIVE: CASE EVENT DATE: 201708
